FAERS Safety Report 6910739-1 (Version None)
Quarter: 2010Q3

REPORT INFORMATION
  Report Type: 
  Country: None (occurrence: None)
  Receive Date: 20100806
  Receipt Date: 20100728
  Transmission Date: 20110219
  Serious: Yes (Hospitalization)
  Sender: FDA-Public Use
  Company Number: JP-PFIZER INC-2010080630

PATIENT
  Age: 70 Year
  Sex: Male
  Weight: 65 kg

DRUGS (7)
  1. SUNITINIB MALATE [Suspect]
     Indication: RENAL CELL CARCINOMA
     Dosage: 50 MG, 1X/DAY
     Route: 048
     Dates: start: 20090323, end: 20090408
  2. EURAX ^NOVARTIS^ [Concomitant]
     Dosage: UNK
     Route: 062
     Dates: start: 20090401, end: 20090411
  3. LOPEMIN [Concomitant]
     Dosage: 1 MG, 1X/DAY
     Route: 048
     Dates: start: 20090405, end: 20090406
  4. LOXONIN [Concomitant]
     Dosage: 60 MG, 1X/DAY
     Route: 048
     Dates: start: 20090407, end: 20090412
  5. MEVALOTIN [Concomitant]
     Dosage: 10 MG, 1X/DAY
     Route: 048
  6. AMLODIPINE BESYLATE [Concomitant]
     Dosage: 10 MG, 1X/DAY
     Route: 048
  7. ZYLORIC ^FAES^ [Concomitant]
     Indication: HYPERURICAEMIA
     Dosage: 100 MG, 1X/DAY
     Route: 048

REACTIONS (1)
  - PLATELET COUNT DECREASED [None]
